FAERS Safety Report 12983284 (Version 1)
Quarter: 2016Q4

REPORT INFORMATION
  Report Type: Spontaneous
  Country: US (occurrence: US)
  Receive Date: 20161129
  Receipt Date: 20161129
  Transmission Date: 20170207
  Serious: No
  Sender: FDA-Public Use
  Company Number: US-KERYX BIOPHARMACEUTICALS, INC.-2016US002131

PATIENT
  Sex: Male

DRUGS (2)
  1. AURYXIA [Suspect]
     Active Substance: TETRAFERRIC TRICITRATE DECAHYDRATE
     Indication: PRODUCT USED FOR UNKNOWN INDICATION
     Dosage: 2 CAPSULES; DURING EACH MEAL
  2. SUCRALFATE. [Suspect]
     Active Substance: SUCRALFATE
     Indication: ULCER
     Dosage: 1 G, 1 HOUR BEFORE EACH MEAL

REACTIONS (2)
  - Drug interaction [Unknown]
  - Blood phosphorus increased [Unknown]
